FAERS Safety Report 5793061-9 (Version None)
Quarter: 2008Q2

REPORT INFORMATION
  Report Type: 
  Country: None (occurrence: None)
  Receive Date: 20080625
  Receipt Date: 20080609
  Transmission Date: 20081010
  Serious: Yes (Other)
  Sender: FDA-Public Use
  Company Number: 8033626

PATIENT
  Age: 66 Year
  Sex: Male

DRUGS (1)
  1. ERGOCALCIFEROL [Suspect]
     Dosage: 50000 IU/M

REACTIONS (8)
  - ANGIOTENSIN CONVERTING ENZYME INCREASED [None]
  - BLOOD 1,25-DIHYDROXYCHOLECALCIFEROL INCREASED [None]
  - BLOOD CREATININE INCREASED [None]
  - BLOOD UREA INCREASED [None]
  - CONSTIPATION [None]
  - HYPERCALCAEMIA [None]
  - LETHARGY [None]
  - NO THERAPEUTIC RESPONSE [None]
